FAERS Safety Report 14686572 (Version 1)
Quarter: 2018Q1

REPORT INFORMATION
  Report Type: Spontaneous
  Country: US (occurrence: US)
  Receive Date: 20180327
  Receipt Date: 20180327
  Transmission Date: 20180509
  Serious: No
  Sender: FDA-Public Use
  Company Number: US-MAYNE PHARMA-2017MYN001889

PATIENT

DRUGS (2)
  1. TAMOXIFEN CITRATE. [Suspect]
     Active Substance: TAMOXIFEN CITRATE
     Indication: INTRADUCTAL PROLIFERATIVE BREAST LESION
     Dosage: 20 MG, QPM
     Route: 048
     Dates: start: 201608, end: 201612
  2. MULTIVITAMINUM [Concomitant]
     Indication: PRODUCT USED FOR UNKNOWN INDICATION
     Dosage: UNK, QD

REACTIONS (11)
  - Gastrointestinal motility disorder [Recovered/Resolved]
  - Flatulence [Recovered/Resolved]
  - Constipation [Recovered/Resolved]
  - Abdominal distension [Recovered/Resolved]
  - Anxiety [Recovered/Resolved]
  - Depression [Recovered/Resolved]
  - Product substitution issue [Unknown]
  - Insomnia [Recovered/Resolved]
  - Irritability [Recovered/Resolved]
  - Discomfort [Recovered/Resolved]
  - Stress [Recovered/Resolved]
